FAERS Safety Report 21408752 (Version 1)
Quarter: 2022Q4

REPORT INFORMATION
  Report Type: Spontaneous
  Country: US (occurrence: None)
  Receive Date: 20221003
  Receipt Date: 20221003
  Transmission Date: 20230112
  Serious: No
  Sender: FDA-Public Use
  Company Number: None

PATIENT
  Age: 67 Year
  Sex: Female

DRUGS (1)
  1. EPCLUSA [Suspect]
     Active Substance: SOFOSBUVIR\VELPATASVIR
     Dosage: OTHER QUANTITY : 400-100 MG;?FREQUENCY : DAILY;?
     Route: 048
     Dates: start: 202209

REACTIONS (2)
  - Skin infection [None]
  - Diarrhoea [None]

NARRATIVE: CASE EVENT DATE: 20220922
